FAERS Safety Report 21545004 (Version 3)
Quarter: 2022Q4

REPORT INFORMATION
  Report Type: Spontaneous
  Country: BE (occurrence: BE)
  Receive Date: 20221103
  Receipt Date: 20221110
  Transmission Date: 20230113
  Serious: Yes (Hospitalization)
  Sender: FDA-Public Use
  Company Number: BE-FAMHP-DHH-N2022-119168

PATIENT
  Age: 23 Year
  Sex: Female
  Weight: 48 kg

DRUGS (9)
  1. HUMIRA [Suspect]
     Active Substance: ADALIMUMAB
     Indication: Crohn^s disease
     Dosage: 1 INJECTION WEEKLY
     Route: 058
     Dates: start: 20190501
  2. ISORDIL [Concomitant]
     Active Substance: ISOSORBIDE DINITRATE
     Indication: Product used for unknown indication
     Dates: start: 20221003, end: 20221009
  3. DICLOFENAC [Concomitant]
     Active Substance: DICLOFENAC
     Indication: Product used for unknown indication
     Dosage: 1 TABLET, MORNING AND EVENING.
     Route: 048
     Dates: start: 20221003, end: 20221009
  4. GLYCERIN [Concomitant]
     Active Substance: GLYCERIN
     Indication: Product used for unknown indication
  5. LAVEMENT PHOSPHATE [Concomitant]
     Indication: Product used for unknown indication
  6. PSYLLIUM [Concomitant]
     Active Substance: PLANTAGO SEED
     Indication: Product used for unknown indication
  7. MAGNESIUM SULFATE STEROP [Concomitant]
     Indication: Product used for unknown indication
  8. ATROPA BELLADONNA\HOMEOPATHICS [Concomitant]
     Active Substance: ATROPA BELLADONNA\HOMEOPATHICS
     Indication: Product used for unknown indication
  9. DIBUCAINE\POLICRESULEN [Concomitant]
     Active Substance: DIBUCAINE\POLICRESULEN
     Indication: Product used for unknown indication

REACTIONS (4)
  - Faecaloma [Recovered/Resolved with Sequelae]
  - Weight decreased [Recovered/Resolved with Sequelae]
  - Anal fissure [Recovered/Resolved with Sequelae]
  - Prolapse [Recovered/Resolved with Sequelae]

NARRATIVE: CASE EVENT DATE: 20220829
